FAERS Safety Report 8822900 (Version 1)
Quarter: 2012Q4

REPORT INFORMATION
  Report Type: 
  Country: US (occurrence: US)
  Receive Date: 20121003
  Receipt Date: 20121003
  Transmission Date: 20130627
  Serious: Yes (Death)
  Sender: FDA-Public Use
  Company Number: US-ROCHE-1131628

PATIENT
  Sex: Female

DRUGS (5)
  1. RITUXAN [Suspect]
     Indication: DERMATOMYOSITIS
     Route: 065
  2. RITUXAN [Suspect]
     Indication: OFF LABEL USE
  3. RITUXAN [Suspect]
     Indication: RHEUMATOID ARTHRITIS
  4. RITUXAN [Suspect]
     Indication: POLYMYOSITIS
  5. CYTOXAN [Concomitant]

REACTIONS (1)
  - Pulmonary fibrosis [Fatal]
